FAERS Safety Report 18145160 (Version 1)
Quarter: 2020Q3

REPORT INFORMATION
  Report Type: Spontaneous
  Country: US (occurrence: US)
  Receive Date: 20200813
  Receipt Date: 20200813
  Transmission Date: 20201103
  Serious: No
  Sender: FDA-Public Use
  Company Number: US-PFIZER INC-2019460308

PATIENT
  Age: 45 Year
  Sex: Female

DRUGS (6)
  1. DILANTIN [Suspect]
     Active Substance: PHENYTOIN
     Indication: OBESITY
  2. DILANTIN [Suspect]
     Active Substance: PHENYTOIN
     Indication: MAMMOGRAM
     Dosage: 100 MG, 3X/DAY
     Route: 048
  3. DILANTIN [Suspect]
     Active Substance: PHENYTOIN
     Indication: VITAMIN D DEFICIENCY
     Dosage: 300 MG, 1X/DAY (3 CAPS DAILY AT BEDTIME)
  4. DILANTIN [Suspect]
     Active Substance: PHENYTOIN
     Indication: SEIZURE
  5. DILANTIN [Suspect]
     Active Substance: PHENYTOIN
     Indication: OSTEOPOROSIS
  6. DILANTIN [Suspect]
     Active Substance: PHENYTOIN
     Indication: HYPERTENSION

REACTIONS (3)
  - Weight increased [Unknown]
  - Memory impairment [Unknown]
  - Product dispensing error [Unknown]

NARRATIVE: CASE EVENT DATE: 2010
